FAERS Safety Report 9548869 (Version 2)
Quarter: 2013Q3

REPORT INFORMATION
  Report Type: Spontaneous
  Country: JP (occurrence: JP)
  Receive Date: 20130924
  Receipt Date: 20130930
  Transmission Date: 20140515
  Serious: Yes (Hospitalization)
  Sender: FDA-Public Use
  Company Number: JP-PFIZER INC-2013271601

PATIENT
  Age: 88 Year
  Sex: Female

DRUGS (4)
  1. JZOLOFT [Suspect]
     Dosage: 25 MG, 3X/DAY
     Route: 048
  2. SEROQUEL [Concomitant]
     Dosage: UNK
  3. BONOTEO [Concomitant]
  4. MAG-LAX [Concomitant]

REACTIONS (1)
  - Pneumonia aspiration [Not Recovered/Not Resolved]
